FAERS Safety Report 5670034-8 (Version None)
Quarter: 2008Q1

REPORT INFORMATION
  Report Type: 
  Country: None (occurrence: None)
  Receive Date: 20080312
  Receipt Date: 20080225
  Transmission Date: 20080703
  Serious: Yes (Hospitalization)
  Sender: FDA-Public Use
  Company Number: 8030221

PATIENT
  Age: 56 Year
  Sex: Male
  Weight: 80 kg

DRUGS (14)
  1. LEVETIRACETAM [Suspect]
     Indication: GRAND MAL CONVULSION
     Dosage: 1.5 G 2/D PO
     Route: 048
     Dates: end: 20080204
  2. ALFUZOSIN HCL [Concomitant]
  3. CALCICHEW [Concomitant]
  4. CLOBAZAM [Concomitant]
  5. ESOMEPRAZOLE MAGNESIUM [Concomitant]
  6. FENTANYL [Concomitant]
  7. LACTULOSE [Concomitant]
  8. LEVOTHYROXINE SODIUM [Concomitant]
  9. NOVOLOG MIX 70/30 [Concomitant]
  10. PHENYTOIN [Concomitant]
  11. QUININE SULPHATE [Concomitant]
  12. SPIRONOLACTONE [Concomitant]
  13. THIAMINE [Concomitant]
  14. XIPAMIDE [Concomitant]

REACTIONS (1)
  - PANCYTOPENIA [None]
